FAERS Safety Report 18440636 (Version 1)
Quarter: 2020Q4

REPORT INFORMATION
  Report Type: Report from Study
  Country: US (occurrence: CL)
  Receive Date: 20201029
  Receipt Date: 20201029
  Transmission Date: 20210114
  Serious: Yes (Hospitalization)
  Sender: FDA-Public Use
  Company Number: CL-ELI_LILLY_AND_COMPANY-CL202010012010

PATIENT
  Age: 57 Year
  Sex: Male
  Weight: 68 kg

DRUGS (14)
  1. PEMETREXED. [Suspect]
     Active Substance: PEMETREXED
     Indication: NON-SMALL CELL LUNG CANCER METASTATIC
     Dosage: 500 MG/M2, Q3W
     Route: 042
     Dates: start: 20200915, end: 20200915
  2. TRAMAL [Concomitant]
     Active Substance: TRAMADOL
     Dosage: 5 DOSAGE FORM
     Dates: start: 20200911
  3. OMEPRAZOLE. [Concomitant]
     Active Substance: OMEPRAZOLE
     Dosage: 20 MG
     Dates: start: 20200930
  4. CELECOXIB. [Concomitant]
     Active Substance: CELECOXIB
     Dosage: 200 MG
     Dates: start: 20200623
  5. CARBOPLATIN. [Concomitant]
     Active Substance: CARBOPLATIN
     Dosage: AREA UNDER CURVE (AUC 5) MG/ML/MIN, Q3W
     Route: 042
     Dates: start: 20201007, end: 20201007
  6. CODEINE [Concomitant]
     Active Substance: CODEINE
     Dosage: 0.5 ML
     Dates: start: 20200930
  7. ACETAMINOPHEN. [Concomitant]
     Active Substance: ACETAMINOPHEN
     Dosage: 1 G
     Dates: start: 20200623
  8. KETOPROFEN. [Concomitant]
     Active Substance: KETOPROFEN
     Dosage: 50 MG
     Dates: start: 20200902
  9. METOCLOPRAMIDE. [Concomitant]
     Active Substance: METOCLOPRAMIDE
     Dosage: 10 MG
     Dates: start: 20200930
  10. PEMETREXED. [Suspect]
     Active Substance: PEMETREXED
     Dosage: 500 MG/M2, Q3W
     Route: 042
     Dates: start: 20201007, end: 20201007
  11. PEMBROLIZUMAB. [Concomitant]
     Active Substance: PEMBROLIZUMAB
     Indication: NON-SMALL CELL LUNG CANCER METASTATIC
     Dosage: 200 MG, Q3W
     Route: 042
     Dates: start: 20200915, end: 20200915
  12. CARBOPLATIN. [Concomitant]
     Active Substance: CARBOPLATIN
     Indication: NON-SMALL CELL LUNG CANCER METASTATIC
     Dosage: AREA UNDER CURVE (AUC 5) MG/ML/MIN, Q3W
     Route: 042
     Dates: start: 20200915, end: 20200915
  13. CRONUS [PARACETAMOL;TRAMADOL HYDROCHLORIDE] [Concomitant]
     Dosage: 1 DOSAGE FORM
     Dates: start: 20200930
  14. PEMBROLIZUMAB. [Concomitant]
     Active Substance: PEMBROLIZUMAB
     Dosage: 200 MG, Q3W
     Route: 042
     Dates: start: 20201007, end: 20201007

REACTIONS (1)
  - Interstitial lung disease [Recovering/Resolving]

NARRATIVE: CASE EVENT DATE: 20201021
